FAERS Safety Report 19243101 (Version 1)
Quarter: 2021Q2

REPORT INFORMATION
  Report Type: Spontaneous
  Country: DE (occurrence: DE)
  Receive Date: 20210511
  Receipt Date: 20210511
  Transmission Date: 20210717
  Serious: Yes (Other)
  Sender: FDA-Public Use
  Company Number: DE-TERSERA THERAPEUTICS LLC-2021TRS002110

PATIENT

DRUGS (6)
  1. XERMELO [Suspect]
     Active Substance: TELOTRISTAT ETHYL
     Indication: CARCINOID SYNDROME
     Dosage: 250 MG, QD (ONCE DAILY)
     Route: 065
     Dates: start: 201801, end: 201804
  2. EVEROLIMUS. [Suspect]
     Active Substance: EVEROLIMUS
     Indication: CARCINOID SYNDROME
     Dosage: 10 MG, QD (ONCE DAILY)
     Route: 065
     Dates: start: 201801, end: 201804
  3. XERMELO [Suspect]
     Active Substance: TELOTRISTAT ETHYL
     Dosage: 250 MG, TID (THRICE DAILY)
     Route: 065
     Dates: start: 201805
  4. OCTREOTIDE. [Suspect]
     Active Substance: OCTREOTIDE
     Dosage: 100 MG, TID (THRICE DAILY)
     Route: 058
     Dates: start: 201805
  5. SOMATULINE AUTOGEL [Suspect]
     Active Substance: LANREOTIDE ACETATE
     Indication: CARCINOID SYNDROME
     Dosage: 120 MG, EVERY 4 WEEKS
     Route: 065
     Dates: start: 201805
  6. OCTREOTIDE. [Suspect]
     Active Substance: OCTREOTIDE
     Indication: CARCINOID SYNDROME
     Dosage: 20 MG, EVERY 4 WEEKS
     Route: 030
     Dates: start: 201702, end: 201702

REACTIONS (6)
  - Hyperthyroidism [Unknown]
  - Liver abscess [Unknown]
  - Disease progression [Not Recovered/Not Resolved]
  - Condition aggravated [Not Recovered/Not Resolved]
  - Streptococcal infection [Unknown]
  - Off label use [Unknown]

NARRATIVE: CASE EVENT DATE: 201801
